FAERS Safety Report 11590514 (Version 1)
Quarter: 2015Q4

REPORT INFORMATION
  Report Type: Spontaneous
  Country: US (occurrence: US)
  Receive Date: 20151002
  Receipt Date: 20151002
  Transmission Date: 20160304
  Serious: No
  Sender: FDA-Public Use
  Company Number: US-EMD SERONO-8045266

PATIENT
  Sex: Female

DRUGS (1)
  1. REBIF [Suspect]
     Active Substance: INTERFERON BETA-1A
     Indication: MULTIPLE SCLEROSIS
     Dates: start: 2009

REACTIONS (5)
  - Muscle spasms [Not Recovered/Not Resolved]
  - Peroneal nerve palsy [Not Recovered/Not Resolved]
  - Dysphagia [Not Recovered/Not Resolved]
  - Drug intolerance [Not Recovered/Not Resolved]
  - Visual acuity reduced [Not Recovered/Not Resolved]
